FAERS Safety Report 13850100 (Version 3)
Quarter: 2018Q1

REPORT INFORMATION
  Report Type: Spontaneous
  Country: US (occurrence: US)
  Receive Date: 20170809
  Receipt Date: 20180221
  Transmission Date: 20180508
  Serious: Yes (Other)
  Sender: FDA-Public Use
  Company Number: US-LUPIN PHARMACEUTICALS INC.-2017-04203

PATIENT
  Age: 84 Year
  Sex: Female
  Weight: 67.12 kg

DRUGS (1)
  1. ETHAMBUTOL HYDROCHLORIDE TABLETS USP 400 MG [Suspect]
     Active Substance: ETHAMBUTOL HYDROCHLORIDE
     Indication: TUBERCULOSIS
     Dosage: 800 MG, THREE TIMES A WEEK
     Route: 048
     Dates: start: 20150701, end: 20170420

REACTIONS (1)
  - Optic atrophy [Not Recovered/Not Resolved]

NARRATIVE: CASE EVENT DATE: 20170303
